FAERS Safety Report 15371290 (Version 2)
Quarter: 2018Q3

REPORT INFORMATION
  Report Type: Spontaneous
  Country: FR (occurrence: FR)
  Receive Date: 20180911
  Receipt Date: 20180917
  Transmission Date: 20181010
  Serious: Yes (Hospitalization)
  Sender: FDA-Public Use
  Company Number: FR-SA-2018SA246423

PATIENT
  Age: 49 Year
  Sex: Male
  Weight: 72 kg

DRUGS (3)
  1. DUPIXENT [Suspect]
     Active Substance: DUPILUMAB
     Indication: DERMATITIS ATOPIC
     Dosage: 600 MG, 1X
     Route: 058
     Dates: start: 20180727, end: 20180727
  2. DUPIXENT [Suspect]
     Active Substance: DUPILUMAB
     Indication: DERMATITIS ATOPIC
     Dosage: 300 MG, QOW
     Route: 058
     Dates: start: 20180810, end: 20180810
  3. ALPRAZOLAM. [Concomitant]
     Active Substance: ALPRAZOLAM
     Indication: ANXIETY
     Dosage: 2?3 DF DAILY
     Route: 048

REACTIONS (14)
  - Influenza like illness [Recovered/Resolved]
  - Muscular weakness [Recovering/Resolving]
  - Burning sensation [Recovering/Resolving]
  - Headache [Recovering/Resolving]
  - Gait disturbance [Recovering/Resolving]
  - Chills [Recovered/Resolved]
  - Pyrexia [Recovering/Resolving]
  - Gamma-glutamyltransferase increased [Recovering/Resolving]
  - Systemic inflammatory response syndrome [Recovering/Resolving]
  - Musculoskeletal pain [Recovering/Resolving]
  - Hyperhidrosis [Recovered/Resolved]
  - Paraesthesia [Recovering/Resolving]
  - Weight decreased [Recovering/Resolving]
  - Fatigue [Recovering/Resolving]

NARRATIVE: CASE EVENT DATE: 20180727
